FAERS Safety Report 8747200 (Version 1)
Quarter: 2012Q4

REPORT INFORMATION
  Report Type: 
  Country: JP (occurrence: JP)
  Receive Date: 20120829
  Receipt Date: 20120829
  Transmission Date: 20130627
  Serious: Yes (Other)
  Sender: FDA-Public Use
  Company Number: JP-SHIRE-ALL1-2012-03853

PATIENT

DRUGS (5)
  1. FOSRENOL [Suspect]
     Indication: HYPERPHOSPHATAEMIA
     Dosage: 375-2250 mg, Unknown
     Route: 048
  2. RENAGEL [Suspect]
     Indication: HYPERPHOSPHATAEMIA
     Dosage: 750-9000 mg, Unknown
  3. VITAMIN D /00107901/ [Concomitant]
     Indication: PRODUCT USED FOR UNKNOWN INDICATION
     Dosage: UNK, Unknown
     Route: 065
  4. CALCIUM CARBONATE [Concomitant]
     Indication: PRODUCT USED FOR UNKNOWN INDICATION
     Dosage: UNK, Unknown
     Route: 065
  5. CINACALCET HYDROCHLORIDE [Concomitant]
     Indication: PRODUCT USED FOR UNKNOWN INDICATION
     Dosage: UNK, Unknown
     Route: 065

REACTIONS (17)
  - Cholecystitis acute [Unknown]
  - Bile duct stone [Unknown]
  - Abscess [Unknown]
  - Viral pericarditis [Unknown]
  - Peripheral arterial occlusive disease [Unknown]
  - Shunt malfunction [Unknown]
  - Hepatic function abnormal [Unknown]
  - Flatulence [Unknown]
  - Malaise [Unknown]
  - Decreased appetite [Unknown]
  - Constipation [Unknown]
  - Dyspepsia [Unknown]
  - Diarrhoea [Unknown]
  - Nausea [Unknown]
  - Vomiting [Unknown]
  - Abdominal pain upper [Unknown]
  - Abdominal pain lower [Unknown]
